FAERS Safety Report 26019048 (Version 1)
Quarter: 2025Q4

REPORT INFORMATION
  Report Type: Report from Study
  Country: CA (occurrence: CA)
  Receive Date: 20251110
  Receipt Date: 20251110
  Transmission Date: 20260119
  Serious: Yes (Other)
  Sender: GILEAD
  Company Number: CA-GILEAD-2025-0735735

PATIENT
  Sex: Male

DRUGS (1)
  1. SOFOSBUVIR\VELPATASVIR [Suspect]
     Active Substance: SOFOSBUVIR\VELPATASVIR
     Indication: Hepatitis C
     Dosage: 400MG/10MG TABLET ONCE DAILY FOR 12 WEEKS
     Route: 065
     Dates: end: 202501

REACTIONS (2)
  - Hepatitis C [Unknown]
  - Treatment failure [Unknown]
